FAERS Safety Report 7212419-4 (Version None)
Quarter: 2010Q4

REPORT INFORMATION
  Report Type: 
  Country: None (occurrence: None)
  Receive Date: 20101229
  Receipt Date: 20101229
  Transmission Date: 20110411
  Serious: Yes (Other)
  Sender: FDA-Public Use
  Company Number: OU-10-043-1

PATIENT
  Age: 72 Year
  Sex: Female

DRUGS (2)
  1. CEFTRIAXONE FOR INJECTION (NO PREF. NAME) [Suspect]
     Indication: BACTERAEMIA
     Dosage: 1 G PER DAY; IV
     Route: 042
  2. CEFTRIAXONE FOR INJECTION (NO PREF. NAME) [Suspect]
     Indication: DEVICE RELATED INFECTION
     Dosage: 1 G PER DAY; IV
     Route: 042

REACTIONS (2)
  - CHOREOATHETOSIS [None]
  - LETHARGY [None]
